FAERS Safety Report 17888052 (Version 4)
Quarter: 2020Q3

REPORT INFORMATION
  Report Type: Report from Study
  Country: US (occurrence: US)
  Receive Date: 20200612
  Receipt Date: 20200921
  Transmission Date: 20201103
  Serious: Yes (Disabling, Other)
  Sender: FDA-Public Use
  Company Number: US-SA-2019SA186113

PATIENT

DRUGS (3)
  1. ALEMTUZUMAB [Suspect]
     Active Substance: ALEMTUZUMAB
     Dosage: 12 MG QD
     Route: 041
     Dates: start: 20170807, end: 20170809
  2. ALEMTUZUMAB [Suspect]
     Active Substance: ALEMTUZUMAB
     Indication: MULTIPLE SCLEROSIS
     Dosage: 12 MG, QD
     Route: 041
     Dates: start: 20160627, end: 20160701
  3. OCREVUS [Suspect]
     Active Substance: OCRELIZUMAB
     Indication: PROGRESSIVE MULTIPLE SCLEROSIS
     Dosage: UNK, Q6M
     Dates: start: 201903

REACTIONS (15)
  - Speech disorder [Unknown]
  - Wheelchair user [Unknown]
  - Eye movement disorder [Unknown]
  - Loss of personal independence in daily activities [Not Recovered/Not Resolved]
  - Joint lock [Unknown]
  - Therapeutic response unexpected [Unknown]
  - Drug ineffective [Unknown]
  - Off label use [Unknown]
  - Progressive multiple sclerosis [Unknown]
  - Fatigue [Unknown]
  - Contusion [Unknown]
  - Atonic seizures [Unknown]
  - Drug monitoring procedure not performed [Unknown]
  - Hypoaesthesia [Recovered/Resolved]
  - Muscle spasticity [Unknown]
